FAERS Safety Report 6515372-1 (Version None)
Quarter: 2009Q4

REPORT INFORMATION
  Report Type: 
  Country: None (occurrence: None)
  Receive Date: 20091223
  Receipt Date: 20091210
  Transmission Date: 20100525
  Serious: Yes (Hospitalization, Other)
  Sender: FDA-Public Use
  Company Number: PHHY2009KR53376

PATIENT
  Sex: Male

DRUGS (6)
  1. CLOZARIL [Suspect]
     Indication: SCHIZOPHRENIA
     Dosage: 500 MG
  2. CLOZARIL [Suspect]
     Dosage: 350 MG
     Dates: start: 20081201
  3. HALOPERIDOL [Concomitant]
     Dosage: 10MG/DAY
  4. BENZOTROPINE [Concomitant]
     Dosage: 1.5MG/DAY
  5. RIVOTRIL [Concomitant]
     Dosage: 3T/DAY
  6. DEPATKIN [Concomitant]
     Dosage: 25MG

REACTIONS (2)
  - SCHIZOPHRENIA [None]
  - SUICIDE ATTEMPT [None]
